FAERS Safety Report 8084057-5 (Version None)
Quarter: 2012Q1

REPORT INFORMATION
  Report Type: 
  Country: None (occurrence: None)
  Receive Date: 20120128
  Receipt Date: 20110207
  Transmission Date: 20120608
  Serious: No
  Sender: FDA-Public Use
  Company Number: US-ABBOTT-11P-163-0703213-00

PATIENT
  Age: 19 Year
  Sex: Female

DRUGS (6)
  1. DEXILANT [Concomitant]
     Indication: GASTROOESOPHAGEAL REFLUX DISEASE
  2. SULFASALAZINE [Concomitant]
     Indication: ARTHRALGIA
  3. HUMIRA [Suspect]
     Indication: CROHN'S DISEASE
     Dosage: 80MG SECONDARY LOADING DOSE
     Dates: start: 20110122
  4. LOESTREN BIRTH CONTROL [Concomitant]
     Indication: PRODUCT USED FOR UNKNOWN INDICATION
     Dosage: DAILY
  5. SYNTHROID [Concomitant]
     Indication: HYPOTHYROIDISM
  6. SYMBICORT [Concomitant]
     Indication: ASTHMA
     Dosage: AS NEEDED

REACTIONS (3)
  - INJECTION SITE PAIN [None]
  - INJECTION SITE HAEMATOMA [None]
  - INJECTION SITE HAEMORRHAGE [None]
